FAERS Safety Report 14077922 (Version 2)
Quarter: 2017Q4

REPORT INFORMATION
  Report Type: Spontaneous
  Country: IT (occurrence: IT)
  Receive Date: 20171012
  Receipt Date: 20171014
  Transmission Date: 20180321
  Serious: Yes (Life-Threatening)
  Sender: FDA-Public Use
  Company Number: IT-ROCHE-2006700

PATIENT
  Age: 79 Year
  Sex: Male

DRUGS (3)
  1. HERCEPTIN [Suspect]
     Active Substance: TRASTUZUMAB
     Indication: GASTROINTESTINAL CARCINOMA
     Dosage: 150 MG POWDER FOR CONCENTRATE FOR SOLUTION?1 VIAL
     Route: 042
     Dates: start: 20170621, end: 20170920
  2. CISPLATIN. [Suspect]
     Active Substance: CISPLATIN
     Indication: GASTROINTESTINAL CARCINOMA
     Dosage: 1 MG/ML- 1 X 25 ML GLASS VIAL
     Route: 042
     Dates: start: 20170621, end: 20170920
  3. FLUOROURACIL. [Suspect]
     Active Substance: FLUOROURACIL
     Indication: GASTROINTESTINAL CARCINOMA
     Dosage: 50 MG/ML - 1 X 100ML GLASS 1 VIAL
     Route: 042
     Dates: start: 20170621, end: 20170920

REACTIONS (3)
  - Respiratory failure [Recovering/Resolving]
  - Troponin increased [Recovering/Resolving]
  - Cardiac failure [Recovering/Resolving]

NARRATIVE: CASE EVENT DATE: 20170921
